FAERS Safety Report 5390900-0 (Version None)
Quarter: 2007Q3

REPORT INFORMATION
  Report Type: 
  Country: None (occurrence: None)
  Receive Date: 20070716
  Receipt Date: 20070702
  Transmission Date: 20080115
  Serious: Yes (Hospitalization)
  Sender: FDA-Public Use
  Company Number: GXKR2007US05662

PATIENT
  Age: 68 Year
  Sex: Male

DRUGS (2)
  1. CARBOPLATIN [Suspect]
     Indication: BLADDER CANCER STAGE IV
     Dosage: TIW,
  2. GEMCITABINE [Suspect]
     Indication: BLADDER CANCER STAGE IV
     Dosage: TWO DAYS IN THREE WEEKS (DAY 1 AND 8),

REACTIONS (8)
  - ATELECTASIS [None]
  - CARBON MONOXIDE DIFFUSING CAPACITY DECREASED [None]
  - CRYPTOGENIC ORGANISING PNEUMONIA [None]
  - FEBRILE NEUTROPENIA [None]
  - HAEMOPTYSIS [None]
  - HYPOXIA [None]
  - LEUKOCYTOSIS [None]
  - SPUTUM ABNORMAL [None]
